FAERS Safety Report 10390674 (Version 1)
Quarter: 2014Q3

REPORT INFORMATION
  Report Type: Spontaneous
  Country: IT (occurrence: None)
  Receive Date: 20140814
  Receipt Date: 20140814
  Transmission Date: 20150326
  Serious: Yes (Other)
  Sender: FDA-Public Use
  Company Number: FK201403243

PATIENT
  Age: 23 Year
  Sex: Female

DRUGS (3)
  1. PROGESTERONE. [Suspect]
     Active Substance: PROGESTERONE
     Indication: PROPHYLAXIS
     Dosage: 100MG, ONCE, VAGINAL
  2. PROPOFOL. [Concomitant]
     Active Substance: PROPOFOL
  3. FENTANYL. [Concomitant]
     Active Substance: FENTANYL

REACTIONS (3)
  - Hypersensitivity [None]
  - Abortion spontaneous [None]
  - Maternal exposure during pregnancy [None]
